FAERS Safety Report 19001699 (Version 1)
Quarter: 2021Q1

REPORT INFORMATION
  Report Type: Spontaneous
  Country: US (occurrence: US)
  Receive Date: 20210312
  Receipt Date: 20210312
  Transmission Date: 20210420
  Serious: No
  Sender: FDA-Public Use
  Company Number: US-FARMAPROD-202012-1745

PATIENT
  Sex: Male

DRUGS (7)
  1. PENTASA [Concomitant]
     Active Substance: MESALAMINE
     Dosage: DELAYED RELEASE CAPSULE
  2. OXERVATE [Suspect]
     Active Substance: CENEGERMIN-BKBJ
     Indication: NEUROTROPHIC KERATOPATHY
     Route: 047
     Dates: start: 20201214
  3. REFRESH CLASSIC [Concomitant]
     Active Substance: POLYVINYL ALCOHOL\POVIDONE
  4. XIIDRA [Concomitant]
     Active Substance: LIFITEGRAST
     Dosage: DROPERETTE
  5. IRON [Concomitant]
     Active Substance: IRON
     Dosage: 159(45) MG EXTENDED RELEASE TABLET
  6. ENBREL [Concomitant]
     Active Substance: ETANERCEPT
     Dosage: 25MG/0.5 ML SYRYNGE
  7. FISH OIL [Concomitant]
     Active Substance: FISH OIL
     Dosage: 100?150 MG

REACTIONS (2)
  - Eye pain [Unknown]
  - Eyelid pain [Unknown]
